FAERS Safety Report 7672924-3 (Version None)
Quarter: 2011Q3

REPORT INFORMATION
  Report Type: 
  Country: None (occurrence: None)
  Receive Date: 20110809
  Receipt Date: 20110727
  Transmission Date: 20111222
  Serious: Yes (Other)
  Sender: FDA-Public Use
  Company Number: PHFR2011GB03275

PATIENT
  Sex: Male

DRUGS (5)
  1. TEGRETOL [Suspect]
     Dosage: 600 MG/MORNING AND 400 MG/EVENING
     Route: 048
     Dates: start: 20100412
  2. KEPPRA [Concomitant]
     Route: 048
  3. TEGRETOL [Suspect]
     Indication: EPILEPSY
     Route: 048
  4. TEGRETOL [Suspect]
     Dosage: 200 MG
     Route: 048
  5. KEPPRA [Concomitant]
     Dosage: 750 MG/MORNING AND 750 MG/EVENING
     Route: 048
     Dates: start: 20100412

REACTIONS (2)
  - HYPONATRAEMIA [None]
  - CONVULSION [None]
